FAERS Safety Report 9286625 (Version 1)
Quarter: 2013Q2

REPORT INFORMATION
  Report Type: Spontaneous
  Country: US (occurrence: US)
  Receive Date: 20130513
  Receipt Date: 20130513
  Transmission Date: 20140414
  Serious: Yes (Hospitalization)
  Sender: FDA-Public Use
  Company Number: US-ASTRAZENECA-2013SE31451

PATIENT
  Age: 33 Year
  Sex: Male

DRUGS (4)
  1. ENTOCORT EC [Suspect]
     Indication: COLITIS ULCERATIVE
     Route: 048
     Dates: start: 201304
  2. PREDNISOLONE [Concomitant]
     Route: 042
  3. REMICADE [Concomitant]
  4. STEROIDS [Concomitant]
     Route: 042

REACTIONS (5)
  - Migraine [Unknown]
  - Nausea [Unknown]
  - Abdominal pain [Unknown]
  - Fatigue [Unknown]
  - Intentional drug misuse [Unknown]
